FAERS Safety Report 25999103 (Version 1)
Quarter: 2025Q4

REPORT INFORMATION
  Report Type: Other
  Country: EU (occurrence: EU)
  Receive Date: 20251105
  Receipt Date: 20251105
  Transmission Date: 20260117
  Serious: Yes (Hospitalization)
  Sender: ZYDUS PHARM
  Company Number: None

PATIENT

DRUGS (3)
  1. LAMOTRIGINE [Suspect]
     Active Substance: LAMOTRIGINE
     Indication: Poisoning deliberate
     Dosage: 30 DOSAGE FORM, 1 TOTAL
     Route: 048
     Dates: start: 20250930, end: 20250930
  2. LORMETAZEPAM [Suspect]
     Active Substance: LORMETAZEPAM
     Indication: Poisoning deliberate
     Dosage: 15 DOSAGE FORM, 1 TOTAL
     Route: 048
     Dates: start: 20250930, end: 20250930
  3. LEVOMEPROMAZINE MALEATE [Suspect]
     Active Substance: LEVOMEPROMAZINE MALEATE
     Indication: Poisoning deliberate
     Dosage: 30 DOSAGE FORM, 1 TOTAL
     Route: 048
     Dates: start: 20250930, end: 20250930

REACTIONS (3)
  - Electrocardiogram QT prolonged [Recovered/Resolved]
  - Altered state of consciousness [Recovered/Resolved]
  - Poisoning deliberate [Recovered/Resolved]

NARRATIVE: CASE EVENT DATE: 20250930
